FAERS Safety Report 24258964 (Version 4)
Quarter: 2025Q1

REPORT INFORMATION
  Report Type: Spontaneous
  Country: AT (occurrence: AT)
  Receive Date: 20240828
  Receipt Date: 20250109
  Transmission Date: 20250409
  Serious: No
  Sender: PFIZER
  Company Number: AT-PFIZER INC-202400239839

PATIENT

DRUGS (1)
  1. MEDROXYPROGESTERONE [Suspect]
     Active Substance: MEDROXYPROGESTERONE
     Indication: Contraception

REACTIONS (3)
  - Device leakage [Unknown]
  - Device issue [Unknown]
  - Device delivery system issue [Unknown]
